FAERS Safety Report 5836859-0 (Version None)
Quarter: 2008Q3

REPORT INFORMATION
  Report Type: 
  Country: None (occurrence: None)
  Receive Date: 20080807
  Receipt Date: 20080730
  Transmission Date: 20090109
  Serious: Yes (Death)
  Sender: FDA-Public Use
  Company Number: B0532066A

PATIENT
  Age: 90 Year
  Sex: Female

DRUGS (12)
  1. ZINACEF [Suspect]
     Indication: PNEUMONIA
     Dosage: 1.5G THREE TIMES PER DAY
     Route: 042
     Dates: start: 20080502, end: 20080506
  2. ROCEPHIN [Suspect]
     Indication: PNEUMONIA
     Dosage: 2G PER DAY
     Route: 042
     Dates: start: 20080506, end: 20080508
  3. SOMAC [Suspect]
     Dosage: 40MG PER DAY
     Route: 048
     Dates: start: 20080325, end: 20080508
  4. CARDACE [Suspect]
     Indication: BLOOD PRESSURE
     Dosage: 10MG PER DAY
     Route: 048
     Dates: start: 20070510, end: 20080508
  5. KALINORM [Concomitant]
     Route: 048
     Dates: start: 20080506
  6. DIGOXIN [Concomitant]
     Route: 048
     Dates: start: 20040910
  7. ORMOX [Concomitant]
     Route: 048
     Dates: start: 20040708
  8. FURESIS [Concomitant]
     Route: 048
     Dates: start: 20070516
  9. EMCONCOR [Concomitant]
     Route: 048
     Dates: start: 20070522
  10. ASPIRIN [Concomitant]
     Route: 065
  11. PLAVIX [Concomitant]
     Route: 065
  12. MAREVAN [Concomitant]
     Route: 065

REACTIONS (2)
  - DEATH [None]
  - PANCYTOPENIA [None]
